FAERS Safety Report 9674519 (Version 1)
Quarter: 2013Q4

REPORT INFORMATION
  Report Type: Spontaneous
  Country: US (occurrence: US)
  Receive Date: 20131107
  Receipt Date: 20131107
  Transmission Date: 20140711
  Serious: Yes (Other)
  Sender: FDA-Public Use
  Company Number: US-BRISTOL-MYERS SQUIBB COMPANY-19735729

PATIENT
  Sex: 0

DRUGS (2)
  1. KOMBIGLYZE XR [Suspect]
  2. METFORMIN HCL [Suspect]

REACTIONS (1)
  - Brain neoplasm [Unknown]
